FAERS Safety Report 5297735-8 (Version None)
Quarter: 2007Q2

REPORT INFORMATION
  Report Type: 
  Country: None (occurrence: None)
  Receive Date: 20070406
  Receipt Date: 20070312
  Transmission Date: 20071010
  Serious: Yes (Other)
  Sender: FDA-Public Use
  Company Number: 6031026

PATIENT
  Age: 22 Year
  Sex: Male

DRUGS (2)
  1. SERTRALINE [Suspect]
     Indication: SCHIZOPHRENIA
     Dosage: 50,000 MG (50 MG, 1 IN 1 D)
  2. RISPERIDONE [Suspect]
     Indication: SCHIZOPHRENIA
     Dosage: SEE IMAGE

REACTIONS (3)
  - ASTHENIA [None]
  - DEPRESSED MOOD [None]
  - PRIAPISM [None]
